APPROVED DRUG PRODUCT: FENOFIBRATE (MICRONIZED)
Active Ingredient: FENOFIBRATE
Strength: 43MG
Dosage Form/Route: CAPSULE;ORAL
Application: A202579 | Product #001
Applicant: PHARMOBEDIENT CONSULTING LLC
Approved: Jan 10, 2013 | RLD: No | RS: No | Type: DISCN